FAERS Safety Report 11492976 (Version 1)
Quarter: 2015Q3

REPORT INFORMATION
  Report Type: Spontaneous
  Country: US (occurrence: None)
  Receive Date: 20150910
  Receipt Date: 20150910
  Transmission Date: 20151125
  Serious: Yes (Other)
  Sender: FDA-Public Use
  Company Number: None

PATIENT
  Age: 68 Year
  Sex: Female
  Weight: 72.58 kg

DRUGS (1)
  1. WOMENS LAXATIVE [Suspect]
     Active Substance: BISACODYL

REACTIONS (3)
  - Wrong technique in product usage process [None]
  - Product physical consistency issue [None]
  - Abdominal pain upper [None]

NARRATIVE: CASE EVENT DATE: 20150829
